FAERS Safety Report 21466546 (Version 1)
Quarter: 2022Q4

REPORT INFORMATION
  Report Type: Spontaneous
  Country: US (occurrence: None)
  Receive Date: 20221014
  Receipt Date: 20221014
  Transmission Date: 20230113
  Serious: Yes (Other)
  Sender: FDA-Public Use
  Company Number: None

PATIENT
  Age: 69 Year
  Sex: Female

DRUGS (4)
  1. PROLIA [Suspect]
     Active Substance: DENOSUMAB
     Indication: Osteoporosis
     Dosage: OTHER FREQUENCY : Q 6MONTHS;?
     Route: 058
     Dates: start: 20220421, end: 20220421
  2. ALLOPURINOL [Concomitant]
     Active Substance: ALLOPURINOL
  3. BIOTIN [Concomitant]
     Active Substance: BIOTIN
  4. ESOMEPRAZOLE [Concomitant]

REACTIONS (5)
  - Joint swelling [None]
  - Inflammation [None]
  - Erythema [None]
  - Arthralgia [None]
  - Walking aid user [None]

NARRATIVE: CASE EVENT DATE: 20220421
